FAERS Safety Report 7525255-6 (Version None)
Quarter: 2011Q2

REPORT INFORMATION
  Report Type: 
  Country: None (occurrence: None)
  Receive Date: 20110606
  Receipt Date: 20110530
  Transmission Date: 20111010
  Serious: Yes (Hospitalization)
  Sender: FDA-Public Use
  Company Number: JP-B.I. PHARMACEUTICALS,INC./RIDGEFIELD-2011-BP-10783NB

PATIENT
  Sex: Male
  Weight: 56.8 kg

DRUGS (11)
  1. PRADAXA [Suspect]
     Indication: ATRIAL FIBRILLATION
     Dosage: 220 MG
     Route: 048
     Dates: start: 20110325, end: 20110408
  2. DIOVAN [Concomitant]
     Indication: HYPERTENSION
     Dosage: 80 MG
     Route: 048
     Dates: start: 20100918
  3. ASPIRIN [Concomitant]
     Indication: LACUNAR INFARCTION
     Dosage: 100 MG
     Route: 048
     Dates: start: 20100918, end: 20110408
  4. HOCHU-EKKI-TO [Concomitant]
     Indication: BENIGN PROSTATIC HYPERPLASIA
     Route: 065
     Dates: start: 20101001, end: 20110408
  5. SPIRIVA [Concomitant]
     Indication: CHRONIC OBSTRUCTIVE PULMONARY DISEASE
     Dosage: 18 MCG
     Route: 055
     Dates: start: 20100918
  6. BISOPROLOL FUMARATE [Concomitant]
     Indication: HYPERTENSION
     Dosage: 5 MG
     Route: 048
     Dates: start: 20100918
  7. AMLODIN OD [Concomitant]
     Indication: HYPERTENSION
     Dosage: 2.5 MG
     Route: 048
     Dates: start: 20101127
  8. RABEPRAZOLE SODIUM [Concomitant]
     Indication: REFLUX OESOPHAGITIS
     Dosage: 10 MG
     Route: 048
     Dates: start: 20100918, end: 20110408
  9. SILECE [Concomitant]
     Indication: INSOMNIA
     Dosage: 1 MG
     Route: 048
     Dates: start: 20100918
  10. ALLERMIST [Concomitant]
     Indication: RHINITIS
     Route: 045
     Dates: start: 20100918, end: 20110408
  11. MAGMITT [Concomitant]
     Indication: CONSTIPATION
     Dosage: 990 MG
     Route: 048
     Dates: start: 20100918

REACTIONS (3)
  - ABDOMINAL PAIN LOWER [None]
  - DECREASED APPETITE [None]
  - DYSPEPSIA [None]
